FAERS Safety Report 22525940 (Version 1)
Quarter: 2023Q2

REPORT INFORMATION
  Report Type: Spontaneous
  Country: IE (occurrence: IE)
  Receive Date: 20230606
  Receipt Date: 20230606
  Transmission Date: 20230721
  Serious: Yes (Other)
  Sender: FDA-Public Use
  Company Number: IE-MYLANLABS-2023M1058293

PATIENT
  Age: 49 Year
  Sex: Male

DRUGS (4)
  1. CLARITHROMYCIN [Suspect]
     Active Substance: CLARITHROMYCIN
     Indication: Folliculitis
     Dosage: 500 MILLIGRAM, BID
     Route: 048
  2. LYMECYCLINE [Suspect]
     Active Substance: LYMECYCLINE
     Indication: Folliculitis
     Dosage: 408 MILLIGRAM, QD
     Route: 048
  3. TRIMETHOPRIM [Suspect]
     Active Substance: TRIMETHOPRIM
     Indication: Folliculitis
     Dosage: 300 MILLIGRAM, BID
     Route: 048
  4. PREDNISOLONE [Concomitant]
     Active Substance: PREDNISOLONE
     Indication: Folliculitis
     Dosage: 60 MILLIGRAM, QD, THE PATIENT RECEIVED ORAL PREDNISOLONE 60 MG (0.75 MG/KG) ONCE DAILY
     Route: 048

REACTIONS (1)
  - Drug ineffective [Unknown]
